FAERS Safety Report 8318378-5 (Version None)
Quarter: 2012Q2

REPORT INFORMATION
  Report Type: 
  Country: None (occurrence: None)
  Receive Date: 20120427
  Receipt Date: 20120417
  Transmission Date: 20120825
  Serious: No
  Sender: FDA-Public Use
  Company Number: US-ROCHE-GNE262919

PATIENT
  Sex: Female
  Weight: 63.56 kg

DRUGS (5)
  1. OMALIZUMAB [Suspect]
     Indication: ASTHMA
     Route: 058
     Dates: start: 20080414
  2. COMBIVENT [Concomitant]
     Indication: ASTHMA
     Route: 048
  3. ZOFRAN [Concomitant]
     Indication: NAUSEA
     Route: 048
     Dates: start: 20120410
  4. BENADRYL [Concomitant]
     Route: 048
  5. ZOFRAN [Concomitant]
     Indication: VOMITING

REACTIONS (8)
  - HEADACHE [None]
  - NAUSEA [None]
  - PYREXIA [None]
  - PAIN [None]
  - VOMITING [None]
  - DIARRHOEA [None]
  - FATIGUE [None]
  - RESPIRATORY DISORDER [None]
